FAERS Safety Report 18877654 (Version 1)
Quarter: 2021Q1

REPORT INFORMATION
  Report Type: Spontaneous
  Country: US (occurrence: US)
  Receive Date: 20210210
  Receipt Date: 20210210
  Transmission Date: 20210420
  Serious: No
  Sender: FDA-Public Use
  Company Number: None

PATIENT
  Age: 34 Year
  Sex: Female
  Weight: 56.7 kg

DRUGS (3)
  1. MIRENA [Suspect]
     Active Substance: LEVONORGESTREL
  2. PROBIOTIC [Concomitant]
     Active Substance: PROBIOTICS NOS
  3. VITAMIN [Concomitant]
     Active Substance: VITAMINS

REACTIONS (4)
  - Uterine spasm [None]
  - Complication associated with device [None]
  - Vomiting [None]
  - Uterine pain [None]

NARRATIVE: CASE EVENT DATE: 20210204
